FAERS Safety Report 6194671-X (Version None)
Quarter: 2009Q2

REPORT INFORMATION
  Report Type: 
  Country: None (occurrence: None)
  Receive Date: 20090519
  Receipt Date: 20090513
  Transmission Date: 20091009
  Serious: Yes (Disabling)
  Sender: FDA-Public Use
  Company Number: GB-BAYER-200911335BNE

PATIENT
  Age: 48 Year
  Sex: Female
  Weight: 60 kg

DRUGS (1)
  1. CANESTEN AF CREAM [Suspect]
     Indication: TINEA PEDIS
     Dosage: APPLIED ON ONLY TWO OCCASSIONS
     Route: 061
     Dates: start: 20090331, end: 20090402

REACTIONS (3)
  - BLISTER [None]
  - HYPERSENSITIVITY [None]
  - PRURITUS [None]
